FAERS Safety Report 8379961-4 (Version None)
Quarter: 2012Q2

REPORT INFORMATION
  Report Type: 
  Country: None (occurrence: None)
  Receive Date: 20120523
  Receipt Date: 20120511
  Transmission Date: 20120825
  Serious: Yes (Other)
  Sender: FDA-Public Use
  Company Number: US-SANOFI-AVENTIS-2012SA034852

PATIENT

DRUGS (2)
  1. TAXOTERE [Suspect]
     Route: 041
  2. INVESTIGATIONAL DRUG [Suspect]
     Route: 065

REACTIONS (2)
  - HYPOCALCAEMIA [None]
  - FATIGUE [None]
